FAERS Safety Report 9613944 (Version 1)
Quarter: 2013Q4

REPORT INFORMATION
  Report Type: Spontaneous
  Country: IT (occurrence: IT)
  Receive Date: 20131011
  Receipt Date: 20131011
  Transmission Date: 20140711
  Serious: Yes (Disabling)
  Sender: FDA-Public Use
  Company Number: IT-MYLANLABS-2013S1022135

PATIENT
  Age: 6 Decade
  Sex: Female

DRUGS (5)
  1. VENLAFAXINE [Suspect]
     Indication: BIPOLAR I DISORDER
     Dosage: 150 MG/DAY
     Route: 065
  2. LITHIUM [Suspect]
     Indication: BIPOLAR I DISORDER
     Dosage: SERUM LEVEL }0.70 MEQ/L
     Route: 065
  3. QUETIAPINE [Concomitant]
     Indication: BIPOLAR I DISORDER
     Dosage: 200 MG/DAY
     Route: 065
  4. TRIAZOLAM [Concomitant]
     Indication: BIPOLAR I DISORDER
     Dosage: 1.0 MG/DAY
     Route: 065
  5. MEMANTINE [Concomitant]
     Indication: MANIA
     Dosage: INCREASED TO 30 MG/DAY WITHIN A WEEK
     Route: 065

REACTIONS (2)
  - Mania [Recovered/Resolved]
  - Tremor [Unknown]
